FAERS Safety Report 6488012-8 (Version None)
Quarter: 2009Q4

REPORT INFORMATION
  Report Type: 
  Country: None (occurrence: None)
  Receive Date: 20091210
  Receipt Date: 20091201
  Transmission Date: 20100525
  Serious: No
  Sender: FDA-Public Use
  Company Number: PHEH2009US17233

PATIENT
  Sex: Male

DRUGS (4)
  1. TASIGNA [Suspect]
     Indication: CHRONIC MYELOID LEUKAEMIA
     Dosage: 400 MG, BID
     Route: 048
     Dates: start: 20090826
  2. MEGESTROL ACETATE [Concomitant]
  3. ONE A DAY MENS [Concomitant]
  4. ASPIRIN [Concomitant]
     Dosage: 81 MG, UNK

REACTIONS (1)
  - MEDICATION ERROR [None]
